FAERS Safety Report 19114075 (Version 1)
Quarter: 2021Q2

REPORT INFORMATION
  Report Type: Spontaneous
  Country: US (occurrence: US)
  Receive Date: 20210409
  Receipt Date: 20210409
  Transmission Date: 20210717
  Serious: No
  Sender: FDA-Public Use
  Company Number: US-ALLERGAN-2103687US

PATIENT
  Age: 45 Year
  Sex: Female

DRUGS (4)
  1. PEPCID [Concomitant]
     Active Substance: FAMOTIDINE
  2. MULTIVITAMIN [Concomitant]
     Active Substance: VITAMINS
  3. LILETTA [Suspect]
     Active Substance: LEVONORGESTREL
     Indication: CONTRACEPTION
     Dosage: 52 MG, SINGLE
     Route: 015
     Dates: start: 20201222, end: 20210119
  4. PROBIOTIC [Concomitant]
     Active Substance: PROBIOTICS NOS

REACTIONS (1)
  - Device expulsion [Unknown]

NARRATIVE: CASE EVENT DATE: 20210119
